FAERS Safety Report 24652689 (Version 2)
Quarter: 2024Q4

REPORT INFORMATION
  Report Type: Spontaneous
  Country: US (occurrence: US)
  Receive Date: 20241122
  Receipt Date: 20241220
  Transmission Date: 20250114
  Serious: Yes (Other)
  Sender: ITALFARMACO SPA
  Company Number: US-ITALFARMACO SPA-2165668

PATIENT
  Age: 22 Year
  Sex: Male
  Weight: 81.6 kg

DRUGS (10)
  1. DUVYZAT [Suspect]
     Active Substance: GIVINOSTAT
     Indication: Duchenne muscular dystrophy
     Dates: start: 20240922, end: 20241106
  2. EMFLAZA [Concomitant]
     Active Substance: DEFLAZACORT
  3. COENZYME Q10 [Concomitant]
     Active Substance: DIETARY SUPPLEMENT\UBIDECARENONE
  4. VITAMIN D [Concomitant]
     Active Substance: VITAMIN D NOS
  5. TOPIRAMATE [Concomitant]
     Active Substance: TOPIRAMATE
  6. METHYLPHENIDATE [Concomitant]
     Active Substance: METHYLPHENIDATE
  7. HYDROCORTISONE ACETATE [Concomitant]
     Active Substance: HYDROCORTISONE ACETATE
  8. LISINOPRIL [Concomitant]
     Active Substance: LISINOPRIL
  9. EPLERENONE [Concomitant]
     Active Substance: EPLERENONE
  10. DULOXETINE [Concomitant]
     Active Substance: DULOXETINE

REACTIONS (1)
  - Platelet count decreased [Unknown]
